FAERS Safety Report 4548547-1 (Version None)
Quarter: 2005Q1

REPORT INFORMATION
  Report Type: 
  Country: None (occurrence: None)
  Receive Date: 20050105
  Receipt Date: 20050105
  Transmission Date: 20050727
  Serious: Yes (Disabling)
  Sender: FDA-Public Use
  Company Number: None

PATIENT
  Age: 79 Year
  Sex: Female
  Weight: 54.8852 kg

DRUGS (2)
  1. FOSAMAX [Suspect]
     Dosage: 70 MG Q 7 D PO
     Route: 048
     Dates: start: 20040924, end: 20041015
  2. LEVOTHYROXINE SODIUM [Concomitant]

REACTIONS (3)
  - DIARRHOEA [None]
  - DYSSTASIA [None]
  - POLYMYALGIA RHEUMATICA [None]
